FAERS Safety Report 6256118-4 (Version None)
Quarter: 2009Q3

REPORT INFORMATION
  Report Type: 
  Country: None (occurrence: None)
  Receive Date: 20090706
  Receipt Date: 20090623
  Transmission Date: 20100115
  Serious: Yes (Hospitalization)
  Sender: FDA-Public Use
  Company Number: PHHY2009GB25520

PATIENT
  Sex: Male

DRUGS (2)
  1. CLOZARIL [Suspect]
     Indication: SCHIZOPHRENIA
     Dosage: 400 MG/DAY, PRN
     Route: 048
     Dates: start: 19940805
  2. CLOZARIL [Suspect]
     Dosage: 800 MG/DAY, PRN
     Route: 048

REACTIONS (1)
  - INCORRECT DOSE ADMINISTERED [None]
